FAERS Safety Report 10226793 (Version 5)
Quarter: 2015Q3

REPORT INFORMATION
  Report Type: Spontaneous
  Country: JP (occurrence: JP)
  Receive Date: 20140610
  Receipt Date: 20150806
  Transmission Date: 20151125
  Serious: Yes (Other)
  Sender: FDA-Public Use
  Company Number: JP-AMGEN INC.-JPNSP2014042658

PATIENT
  Age: 78 Year
  Sex: Male
  Weight: 72 kg

DRUGS (11)
  1. RANMARK [Suspect]
     Active Substance: DENOSUMAB
     Indication: METASTASES TO BONE
     Dosage: 120 MG, UNK
     Route: 058
     Dates: start: 20130918, end: 20140319
  2. PREDONINE [Concomitant]
     Active Substance: PREDNISOLONE\PREDNISOLONE ACETATE\PREDNISOLONE SODIUM SUCCINATE
     Dosage: 5 MG, QD
     Route: 048
     Dates: start: 20130517
  3. NEXIUM [Concomitant]
     Active Substance: ESOMEPRAZOLE MAGNESIUM
     Dosage: 1, QD
     Route: 048
  4. ZOMETA [Suspect]
     Active Substance: ZOLEDRONIC ACID
     Indication: PRODUCT USED FOR UNKNOWN INDICATION
     Dosage: 3.5 MG, QD
     Route: 042
     Dates: start: 20120814, end: 20120929
  5. THYRADIN S [Concomitant]
     Active Substance: LEVOTHYROXINE SODIUM
     Dosage: 1, QD
     Route: 048
  6. NATRIX [Concomitant]
     Active Substance: INDAPAMIDE
     Dosage: 1, QD
     Route: 048
  7. NORVASC [Concomitant]
     Active Substance: AMLODIPINE BESYLATE
     Dosage: 1, QD
     Route: 048
  8. MICARDIS [Concomitant]
     Active Substance: TELMISARTAN
     Dosage: 1, QD
     Route: 048
  9. URINORM                            /00227201/ [Concomitant]
     Dosage: 1, QD
     Route: 048
  10. GONAX [Concomitant]
     Active Substance: DEGARELIX
     Dosage: 80 MG, QD
     Route: 058
  11. PROSEXOL [Concomitant]
     Active Substance: ETHINYL ESTRADIOL
     Dosage: 0.5 MG, TID
     Route: 048
     Dates: start: 20120928

REACTIONS (1)
  - Osteonecrosis of jaw [Recovering/Resolving]

NARRATIVE: CASE EVENT DATE: 20140916
